FAERS Safety Report 7519266-4 (Version None)
Quarter: 2011Q2

REPORT INFORMATION
  Report Type: 
  Country: None (occurrence: None)
  Receive Date: 20110523
  Receipt Date: 20110510
  Transmission Date: 20111010
  Serious: Yes (Other)
  Sender: FDA-Public Use
  Company Number: 2011SP022594

PATIENT
  Age: 45 Year
  Sex: Female

DRUGS (6)
  1. SINGULAIR [Concomitant]
  2. KLONOPIN [Concomitant]
  3. ABILIFY [Concomitant]
  4. ATRPVEMT [Concomitant]
  5. PROVENTIL GENTLEHALER [Suspect]
     Indication: PRODUCT USED FOR UNKNOWN INDICATION
     Dosage: 2 DF, TID
     Dates: start: 20110101
  6. IMITREX [Concomitant]

REACTIONS (4)
  - TOXICITY TO VARIOUS AGENTS [None]
  - PARALYSIS [None]
  - MUSCULOSKELETAL STIFFNESS [None]
  - MUSCLE SPASMS [None]
